FAERS Safety Report 6370737-6 (Version None)
Quarter: 2009Q3

REPORT INFORMATION
  Report Type: 
  Country: None (occurrence: None)
  Receive Date: 20090923
  Receipt Date: 20080107
  Transmission Date: 20100115
  Serious: Yes (Other)
  Sender: FDA-Public Use
  Company Number: US-ASTRAZENECA-2006UW25114

PATIENT
  Age: 42 Year
  Sex: Female
  Weight: 81.6 kg

DRUGS (19)
  1. SEROQUEL [Suspect]
     Indication: BIPOLAR DISORDER
     Dosage: 25-800 MG
     Route: 048
     Dates: start: 19990926
  2. GEODON [Concomitant]
     Dates: start: 20060101
  3. RISPERDAL [Concomitant]
  4. SYNTHROID [Concomitant]
  5. ALBUTEROL [Concomitant]
  6. ESKALITH [Concomitant]
  7. ZYPREXA [Concomitant]
  8. AMBIEN [Concomitant]
  9. NEURONTIN [Concomitant]
  10. BUSPAR [Concomitant]
  11. PAXIL CR [Concomitant]
  12. LEXAPRO [Concomitant]
  13. CLONIDINE [Concomitant]
  14. PROPRANOLOL [Concomitant]
  15. TRILEPTAL [Concomitant]
  16. ATIVAN [Concomitant]
  17. KLONOPIN [Concomitant]
  18. VALIUM [Concomitant]
  19. RESTORIL [Concomitant]

REACTIONS (1)
  - PANCREATITIS [None]
